FAERS Safety Report 22224334 (Version 1)
Quarter: 2023Q2

REPORT INFORMATION
  Report Type: Spontaneous
  Country: GB (occurrence: GB)
  Receive Date: 20230418
  Receipt Date: 20230418
  Transmission Date: 20230722
  Serious: Yes (Other)
  Sender: FDA-Public Use
  Company Number: None

PATIENT
  Age: 81 Year
  Sex: Male

DRUGS (1)
  1. OXALIPLATIN [Suspect]
     Active Substance: OXALIPLATIN
     Dosage: UNK
     Route: 041
     Dates: start: 20230404

REACTIONS (4)
  - Erythema [Recovered/Resolved]
  - Chills [Recovered/Resolved]
  - Neuropathy peripheral [Recovering/Resolving]
  - Nervousness [Recovered/Resolved]

NARRATIVE: CASE EVENT DATE: 20230405
